FAERS Safety Report 5530351-9 (Version None)
Quarter: 2007Q4

REPORT INFORMATION
  Report Type: 
  Country: None (occurrence: None)
  Receive Date: 20071130
  Receipt Date: 20071123
  Transmission Date: 20080405
  Serious: Yes (Other)
  Sender: FDA-Public Use
  Company Number: IE-ROCHE-526766

PATIENT
  Age: 25 Year
  Sex: Female

DRUGS (7)
  1. ROACCUTANE [Suspect]
     Indication: ACNE
     Dosage: PT STOPPED TAKING ROACCUTANE SOME TIME IN AUG 2007 OR SEP 2007.
     Route: 048
     Dates: start: 20070101, end: 20070901
  2. ROACCUTANE [Suspect]
     Dosage: FORM REPORTED AS CAP.
     Route: 048
  3. YASMIN [Concomitant]
     Indication: CONTRACEPTION
     Route: 048
     Dates: end: 20070901
  4. DIANETTE [Concomitant]
     Indication: CONTRACEPTION
     Route: 048
     Dates: start: 20050907, end: 20050901
  5. BENZAMYCIN [Concomitant]
     Route: 061
     Dates: start: 20050101, end: 20050101
  6. DALICIN-T [Concomitant]
     Route: 061
     Dates: start: 20050101
  7. ERYTHROMYCIN [Concomitant]
     Route: 048
     Dates: start: 20050101

REACTIONS (1)
  - PREGNANCY [None]
